FAERS Safety Report 18707868 (Version 1)
Quarter: 2021Q1

REPORT INFORMATION
  Report Type: Spontaneous
  Country: US (occurrence: US)
  Receive Date: 20210106
  Receipt Date: 20210106
  Transmission Date: 20210419
  Serious: Yes (Hospitalization)
  Sender: FDA-Public Use
  Company Number: US-MYLANLABS-2021M1000349

PATIENT
  Age: 58 Year
  Sex: Male

DRUGS (1)
  1. IBUPROFEN. [Suspect]
     Active Substance: IBUPROFEN
     Indication: PAIN
     Dosage: 60 PILLS DAILY OF 200MG....
     Route: 065

REACTIONS (3)
  - Intentional overdose [Recovering/Resolving]
  - Renal tubular acidosis [Recovering/Resolving]
  - Hypokalaemia [Recovering/Resolving]
